FAERS Safety Report 5246785-6 (Version None)
Quarter: 2007Q1

REPORT INFORMATION
  Report Type: 
  Country: None (occurrence: None)
  Receive Date: 20070226
  Receipt Date: 20061012
  Transmission Date: 20070707
  Serious: Yes (Hospitalization)
  Sender: FDA-Public Use
  Company Number: GBWYE210912OCT06

PATIENT

DRUGS (1)
  1. IBUPROFEN [Suspect]
     Indication: OSTEOARTHRITIS
     Dosage: 400MG FREQUENCY UNKNOWN
     Route: 048
     Dates: start: 20050701, end: 20060806

REACTIONS (2)
  - CONDITION AGGRAVATED [None]
  - URTICARIA [None]
